FAERS Safety Report 6981697-9 (Version None)
Quarter: 2010Q3

REPORT INFORMATION
  Report Type: 
  Country: None (occurrence: None)
  Receive Date: 20100914
  Receipt Date: 20091006
  Transmission Date: 20110219
  Serious: No
  Sender: FDA-Public Use
  Company Number: US-PFIZER INC-2009261276

PATIENT
  Age: 59 Year
  Sex: Female
  Weight: 58.06 kg

DRUGS (2)
  1. LYRICA [Suspect]
     Indication: FIBROMYALGIA
     Dosage: 25 MG, 1X/DAY
     Route: 048
     Dates: start: 20090501, end: 20090701
  2. ACIPHEX [Concomitant]
     Dosage: UNK
     Route: 048

REACTIONS (2)
  - CARDIAC FLUTTER [None]
  - DEPRESSION [None]
